FAERS Safety Report 18334301 (Version 1)
Quarter: 2020Q4

REPORT INFORMATION
  Report Type: Spontaneous
  Country: IT (occurrence: IT)
  Receive Date: 20201001
  Receipt Date: 20201001
  Transmission Date: 20210113
  Serious: Yes (Other)
  Sender: FDA-Public Use
  Company Number: IT-MYLANLABS-2020M1081101

PATIENT
  Age: 21 Year
  Sex: Male

DRUGS (4)
  1. LORAZEPAM. [Concomitant]
     Active Substance: LORAZEPAM
     Indication: SCHIZOPHRENIA
     Dosage: 7.5 MILLIGRAM
     Route: 065
  2. RISPERIDONE. [Suspect]
     Active Substance: RISPERIDONE
     Indication: SCHIZOPHRENIA
     Dosage: 5 MILLIGRAM
     Route: 065
  3. LORAZEPAM. [Concomitant]
     Active Substance: LORAZEPAM
     Dosage: 2.5 MILLIGRAM
     Route: 065
  4. OLANZAPINE. [Suspect]
     Active Substance: OLANZAPINE
     Indication: SCHIZOPHRENIA
     Dosage: 20 MILLIGRAM, MAXIMUM DOSE
     Route: 065

REACTIONS (10)
  - Metabolic disorder [Unknown]
  - Libido decreased [Recovering/Resolving]
  - Extrapyramidal disorder [Recovering/Resolving]
  - Impaired work ability [Unknown]
  - Weight increased [Unknown]
  - Fatigue [Unknown]
  - Sexual dysfunction [Recovering/Resolving]
  - Blood cholesterol abnormal [Unknown]
  - Blood prolactin increased [Recovering/Resolving]
  - Blood triglycerides abnormal [Unknown]
